FAERS Safety Report 7019723-3 (Version None)
Quarter: 2010Q3

REPORT INFORMATION
  Report Type: 
  Country: None (occurrence: None)
  Receive Date: 20100929
  Receipt Date: 20100921
  Transmission Date: 20110219
  Serious: Yes (Hospitalization, Other)
  Sender: FDA-Public Use
  Company Number: US-BIOGENIDEC-2010BI020418

PATIENT
  Age: 56 Year
  Sex: Female

DRUGS (2)
  1. TYSABRI [Suspect]
     Indication: MULTIPLE SCLEROSIS
     Route: 042
     Dates: start: 20090105
  2. AVONEX [Concomitant]
     Indication: MULTIPLE SCLEROSIS
     Route: 030
     Dates: start: 20050920

REACTIONS (11)
  - ANKLE FRACTURE [None]
  - ASTHENIA [None]
  - CARDIAC ARREST [None]
  - FALL [None]
  - FATIGUE [None]
  - GASTROINTESTINAL TUBE INSERTION [None]
  - HIATUS HERNIA [None]
  - JOINT INJURY [None]
  - LIVER DISORDER [None]
  - PAIN [None]
  - RESPIRATORY FAILURE [None]
